FAERS Safety Report 15361220 (Version 1)
Quarter: 2018Q3

REPORT INFORMATION
  Report Type: Spontaneous
  Country: ES (occurrence: ES)
  Receive Date: 20180907
  Receipt Date: 20180907
  Transmission Date: 20181010
  Serious: Yes (Other)
  Sender: FDA-Public Use
  Company Number: PHHY2018ES091641

PATIENT
  Age: 5 Year
  Sex: Male

DRUGS (1)
  1. ACETYLSALICYLIC ACID [Suspect]
     Active Substance: ASPIRIN
     Indication: DRUG PROVOCATION TEST
     Dosage: 150 MG, UNK
     Route: 048

REACTIONS (4)
  - Angioedema [Unknown]
  - Eyelid disorder [Unknown]
  - Therapeutic product cross-reactivity [Unknown]
  - Drug hypersensitivity [Unknown]
